FAERS Safety Report 10111052 (Version 3)
Quarter: 2014Q4

REPORT INFORMATION
  Report Type: Spontaneous
  Country: US (occurrence: None)
  Receive Date: 20140421
  Receipt Date: 20141211
  Transmission Date: 20150528
  Serious: Yes (Hospitalization)
  Sender: FDA-Public Use
  Company Number: AEGR000289

PATIENT
  Age: 59 Year
  Sex: Female
  Weight: 102.5 kg

DRUGS (11)
  1. NEURONTIN [Concomitant]
     Active Substance: GABAPENTIN
  2. VITAMIN C [Concomitant]
     Active Substance: ASCORBIC ACID
  3. NEXIUM [Concomitant]
     Active Substance: ESOMEPRAZOLE MAGNESIUM
  4. JUXTAPID [Suspect]
     Active Substance: LOMITAPIDE MESYLATE
     Indication: TYPE IIA HYPERLIPIDAEMIA
     Route: 048
     Dates: start: 20131218, end: 20140610
  5. ASPIRIN. [Concomitant]
     Active Substance: ASPIRIN
  6. AMITRIPTYLINE HCL [Concomitant]
     Active Substance: AMITRIPTYLINE
  7. BENICAR HCT [Concomitant]
     Active Substance: HYDROCHLOROTHIAZIDE\OLMESARTAN MEDOXOMIL
  8. ZETIA [Concomitant]
     Active Substance: EZETIMIBE
  9. CELEBREX [Concomitant]
     Active Substance: CELECOXIB
  10. CALCIUM CARBONATE. [Concomitant]
     Active Substance: CALCIUM CARBONATE
  11. MULTIVITAMIN [Concomitant]
     Active Substance: VITAMINS

REACTIONS (6)
  - Gastritis viral [None]
  - Weight decreased [None]
  - Asthenia [None]
  - Diarrhoea [None]
  - Bedridden [None]
  - Renal failure [None]
